FAERS Safety Report 7464556-7 (Version None)
Quarter: 2011Q2

REPORT INFORMATION
  Report Type: 
  Country: None (occurrence: None)
  Receive Date: 20110509
  Receipt Date: 20110426
  Transmission Date: 20111010
  Serious: No
  Sender: FDA-Public Use
  Company Number: US-JNJFOC-20110500050

PATIENT
  Sex: Female
  Weight: 65.77 kg

DRUGS (10)
  1. EFFEXOR [Concomitant]
     Dosage: 3 IN AM
     Route: 048
  2. EFFEXOR [Concomitant]
     Indication: DEPRESSION
     Dosage: 2 IN PM
     Route: 048
  3. PRAZOSIN HCL [Concomitant]
     Indication: NIGHTMARE
     Dosage: 2-4MG
     Route: 048
  4. FENTANYL CITRATE [Suspect]
     Indication: FIBROMYALGIA
     Route: 062
  5. CYCLOBENZAPRINE [Concomitant]
     Indication: MUSCLE RELAXANT THERAPY
     Dosage: 2-4MG
     Route: 048
  6. AMITRIPTYLINE [Concomitant]
     Indication: DEPRESSION
     Route: 048
  7. SEROQUEL [Concomitant]
     Indication: DEPRESSION
     Route: 048
  8. WELLBUTRIN [Concomitant]
     Indication: DEPRESSION
     Route: 048
  9. FENTANYL-100 [Suspect]
     Indication: FIBROMYALGIA
     Route: 062
  10. OMEPRAZOLE [Concomitant]
     Indication: GASTROOESOPHAGEAL REFLUX DISEASE
     Route: 048

REACTIONS (5)
  - PAIN [None]
  - NAUSEA [None]
  - ANXIETY [None]
  - DRUG INEFFECTIVE [None]
  - INAPPROPRIATE SCHEDULE OF DRUG ADMINISTRATION [None]
